FAERS Safety Report 8007619-X (Version None)
Quarter: 2011Q4

REPORT INFORMATION
  Report Type: 
  Country: None (occurrence: None)
  Receive Date: 20111221
  Receipt Date: 20111122
  Transmission Date: 20120403
  Serious: Yes (Hospitalization)
  Sender: FDA-Public Use
  Company Number: 2011PROUSA00708

PATIENT
  Age: 60 Year
  Sex: Male
  Weight: 114.0343 kg

DRUGS (11)
  1. PROVENGE [Suspect]
  2. LASIX [Concomitant]
  3. FLOMAX /00889901/ (MORNIFLUMATE) [Concomitant]
  4. PROVENGE [Suspect]
  5. PROVENGE [Suspect]
     Indication: PROSTATE CANCER METASTATIC
     Dosage: 250 ML, SINGLE, INTRAVENOUS
     Route: 042
     Dates: start: 20110919, end: 20110919
  6. PROVENGE [Suspect]
     Indication: PROSTATE CANCER METASTATIC
     Dosage: 250 ML, SINGLE, INTRAVENOUS
     Route: 042
     Dates: start: 20111003, end: 20111003
  7. PROVENGE [Suspect]
     Indication: PROSTATE CANCER METASTATIC
     Dosage: 250 ML, SINGLE, INTRAVENOUS
     Route: 042
     Dates: start: 20111024, end: 20111024
  8. NEURONTIN [Concomitant]
  9. HEPARIN [Suspect]
     Indication: INDWELLING CATHETER MANAGEMENT
  10. LUPRON [Concomitant]
  11. CASODEX [Concomitant]

REACTIONS (5)
  - CHEST PAIN [None]
  - HEPARIN-INDUCED THROMBOCYTOPENIA [None]
  - VOMITING [None]
  - AIR EMBOLISM [None]
  - HAEMOGLOBIN DECREASED [None]
